FAERS Safety Report 24790716 (Version 2)
Quarter: 2025Q2

REPORT INFORMATION
  Report Type: Spontaneous
  Country: BR (occurrence: BR)
  Receive Date: 20241230
  Receipt Date: 20250520
  Transmission Date: 20250717
  Serious: Yes (Other)
  Sender: AMERICAN REGENT
  Company Number: BR-AMERICAN REGENT INC-2024004853

PATIENT
  Age: 24 Year
  Sex: Female
  Weight: 55 kg

DRUGS (2)
  1. VENOFER [Suspect]
     Active Substance: IRON SUCROSE
     Indication: Mineral supplementation
     Route: 042
     Dates: start: 20240830, end: 20240830
  2. DROSPIRENONE\ETHINYL ESTRADIOL [Concomitant]
     Active Substance: DROSPIRENONE\ETHINYL ESTRADIOL
     Indication: Product used for unknown indication
     Route: 065
     Dates: start: 2022

REACTIONS (4)
  - Tremor [Recovered/Resolved]
  - Skin discolouration [Recovered/Resolved]
  - Burning sensation [Recovered/Resolved]
  - Peripheral swelling [Recovered/Resolved]

NARRATIVE: CASE EVENT DATE: 20240830
